FAERS Safety Report 25997278 (Version 3)
Quarter: 2025Q4

REPORT INFORMATION
  Report Type: Spontaneous
  Country: EU (occurrence: EU)
  Receive Date: 20251104
  Receipt Date: 20251230
  Transmission Date: 20260118
  Serious: Yes (Other)
  Sender: MYLAN
  Company Number: EU-MYLANLABS-2025M1091089

PATIENT
  Age: 75 Year
  Sex: Female
  Weight: 59 kg

DRUGS (11)
  1. PREDNISONE [Suspect]
     Active Substance: PREDNISONE
     Indication: Hypersensitivity
     Dosage: UNK, QD (UP TO 40 MG PER DAY)
     Route: 061
     Dates: start: 202411, end: 20251020
  2. PREDNISONE [Suspect]
     Active Substance: PREDNISONE
     Indication: Type 2 diabetes mellitus
     Dosage: 1 MILLIGRAM, QD (REDUCED THE DOSES, REACHING 1 MG PER DAY FOR THE LAST MONTH)
     Route: 061
     Dates: end: 20251020
  3. PREDNISONE [Suspect]
     Active Substance: PREDNISONE
     Dosage: 1 MILLIGRAM, QD (PER DAY)
     Route: 061
     Dates: start: 20251026
  4. PREDNISONE [Suspect]
     Active Substance: PREDNISONE
     Dosage: 2 MILLIGRAM, AM (MORNING)
     Route: 061
     Dates: start: 20251029
  5. PREDNISOLONE [Suspect]
     Active Substance: PREDNISOLONE
     Indication: Product used for unknown indication
     Dosage: UNK
  6. PREDNISOLONE [Suspect]
     Active Substance: PREDNISOLONE
     Dosage: 4 MILLIGRAM
  7. METFORMIN HYDROCHLORIDE [Concomitant]
     Active Substance: METFORMIN HYDROCHLORIDE
     Dosage: 500 MILLIGRAM, BID
  8. ZOLPIDEM [Concomitant]
     Active Substance: ZOLPIDEM TARTRATE
     Dosage: 10 MILLIGRAM, QD
  9. LERCANIDIPINE [Concomitant]
     Active Substance: LERCANIDIPINE
     Dosage: 10 MILLIGRAM, QD
  10. OMEPRAZOLE [Concomitant]
     Active Substance: OMEPRAZOLE
     Dosage: 20 MILLIGRAM, QD
  11. DAFALGAN [Concomitant]
     Active Substance: ACETAMINOPHEN
     Dosage: 3 GRAM, QD

REACTIONS (19)
  - Steroid diabetes [Unknown]
  - Hemiplegia [Unknown]
  - Polymyalgia rheumatica [Recovering/Resolving]
  - Ocular hyperaemia [Recovered/Resolved]
  - Epistaxis [Recovered/Resolved]
  - Joint swelling [Unknown]
  - Pain in extremity [Unknown]
  - Peripheral swelling [Unknown]
  - Dizziness [Unknown]
  - Abdominal pain upper [Unknown]
  - Weight decreased [Unknown]
  - Hair growth abnormal [Unknown]
  - Insomnia [Unknown]
  - Arthralgia [Unknown]
  - Full blood count abnormal [Unknown]
  - Asthenopia [Unknown]
  - Drug ineffective [Unknown]
  - Product administration error [Unknown]
  - Product prescribing error [Unknown]

NARRATIVE: CASE EVENT DATE: 20250101
